FAERS Safety Report 4525391-2 (Version None)
Quarter: 2004Q4

REPORT INFORMATION
  Report Type: 
  Country: None (occurrence: None)
  Receive Date: 20041213
  Receipt Date: 19910717
  Transmission Date: 20050328
  Serious: No
  Sender: FDA-Public Use
  Company Number: AU-GLAXOSMITHKLINE-B0151603A

PATIENT
  Age: 20 Year
  Sex: Female
  Weight: 75 kg

DRUGS (4)
  1. CEFTAZIDIME [Suspect]
     Dosage: 4G PER DAY
     Route: 042
     Dates: start: 19900421
  2. ERYTHROMYCIN [Concomitant]
     Dates: start: 19900420
  3. FLOXACILLIN SODIUM [Concomitant]
     Dates: start: 19900420
  4. RANITIDINE [Concomitant]
     Dates: start: 19900420

REACTIONS (1)
  - CONVULSION [None]
